FAERS Safety Report 20004286 (Version 1)
Quarter: 2021Q4

REPORT INFORMATION
  Report Type: Spontaneous
  Country: US (occurrence: US)
  Receive Date: 20211028
  Receipt Date: 20211028
  Transmission Date: 20220303
  Serious: No
  Sender: FDA-Public Use
  Company Number: US-TEVA-2021-US-1969962

PATIENT
  Age: 64 Year
  Sex: Female

DRUGS (1)
  1. MESALAMINE [Suspect]
     Active Substance: MESALAMINE
     Indication: Proctitis ulcerative
     Dosage: 1000 MILLIGRAM DAILY;
     Route: 054
     Dates: start: 20211011

REACTIONS (2)
  - Drug ineffective [Unknown]
  - Product physical issue [Unknown]

NARRATIVE: CASE EVENT DATE: 20211011
